FAERS Safety Report 5219685-5 (Version None)
Quarter: 2007Q1

REPORT INFORMATION
  Report Type: 
  Country: None (occurrence: None)
  Receive Date: 20070125
  Receipt Date: 20070118
  Transmission Date: 20070707
  Serious: Yes (Other)
  Sender: FDA-Public Use
  Company Number: US-PFIZER INC-2006124562

PATIENT
  Sex: Male

DRUGS (1)
  1. LIPITOR [Suspect]
     Indication: BLOOD CHOLESTEROL INCREASED
     Dosage: DAILY DOSE:10MG
     Dates: start: 19990101, end: 20031024

REACTIONS (17)
  - AMNESIA [None]
  - ASTHENIA [None]
  - BALANCE DISORDER [None]
  - COGNITIVE DISORDER [None]
  - DEPRESSION [None]
  - DISORIENTATION [None]
  - DYSPHAGIA [None]
  - DYSPHASIA [None]
  - FATIGUE [None]
  - GAIT DISTURBANCE [None]
  - MOOD ALTERED [None]
  - MYOPATHY [None]
  - NERVOUS SYSTEM DISORDER [None]
  - NEUROPATHY PERIPHERAL [None]
  - POLYMYOSITIS [None]
  - SENSORY DISTURBANCE [None]
  - SPEECH DISORDER [None]
